FAERS Safety Report 16746608 (Version 1)
Quarter: 2019Q3

REPORT INFORMATION
  Report Type: Spontaneous
  Country: ES (occurrence: ES)
  Receive Date: 20190827
  Receipt Date: 20190827
  Transmission Date: 20191005
  Serious: Yes (Hospitalization, Other)
  Sender: FDA-Public Use
  Company Number: ES-MYLANLABS-2019M1079636

PATIENT
  Age: 78 Year
  Sex: Female

DRUGS (10)
  1. EMCONCOR COR [Concomitant]
     Active Substance: BISOPROLOL
     Indication: HYPERTENSION
     Dosage: 5 MILLIGRAM, QD
     Route: 048
  2. JANUVIA [Concomitant]
     Active Substance: SITAGLIPTIN PHOSPHATE
     Indication: TYPE 2 DIABETES MELLITUS
     Dosage: (0-1-0 TOMAR AL EMPEZA LA COMIDA)
     Route: 048
  3. LEVOFLOXACIN. [Suspect]
     Active Substance: LEVOFLOXACIN
     Indication: HELICOBACTER TEST POSITIVE
     Dosage: 500MG C/24H. LEVOFLOXACINO 500 1/24 HORAS DURANTE 14 D?AS
     Route: 048
     Dates: start: 20190226, end: 20190305
  4. NOCTAMID [Concomitant]
     Active Substance: LORMETAZEPAM
     Indication: MAJOR DEPRESSION
  5. OMEPRAZOL                          /00661201/ [Concomitant]
     Active Substance: OMEPRAZOLE
     Indication: HELICOBACTER TEST POSITIVE
     Dosage: OMEPRAZOL 20 1/24 HORAS DURANTE 14 D?AS
     Route: 048
     Dates: start: 20190226
  6. URBASON                            /00049601/ [Interacting]
     Active Substance: METHYLPREDNISOLONE
     Indication: RHEUMATOID ARTHRITIS
     Dosage: 4 MILLIGRAM, QD
     Route: 048
     Dates: start: 201811
  7. IXIA PLUS [Concomitant]
     Active Substance: HYDROCHLOROTHIAZIDE\OLMESARTAN MEDOXOMIL
     Indication: HYPERTENSION
     Dosage: 1 DOSAGE FORM, QD
     Route: 048
  8. NOCTAMID [Concomitant]
     Active Substance: LORMETAZEPAM
     Indication: INSOMNIA
     Dosage: 1.5 MILLIGRAM, QD(0-0-0-1,5)
     Route: 048
  9. PROVISACOR [Concomitant]
     Active Substance: ROSUVASTATIN
     Indication: HYPERLIPIDAEMIA
     Dosage: UNK
     Route: 048
  10. CLARITROMICINA [Concomitant]
     Active Substance: CLARITHROMYCIN
     Indication: HELICOBACTER TEST POSITIVE
     Dosage: 500 MILLIGRAM, BID(CLARITOMICINA 500 1/12 HORAS DURANTE 14 D?AS)
     Route: 048
     Dates: start: 20190226

REACTIONS (2)
  - Tendon rupture [Unknown]
  - Drug interaction [Unknown]

NARRATIVE: CASE EVENT DATE: 201903
